FAERS Safety Report 7811916-8 (Version None)
Quarter: 2011Q4

REPORT INFORMATION
  Report Type: 
  Country: None (occurrence: None)
  Receive Date: 20111013
  Receipt Date: 20111010
  Transmission Date: 20120403
  Serious: Yes (Hospitalization)
  Sender: FDA-Public Use
  Company Number: PHEH2011US06387

PATIENT
  Sex: Male
  Weight: 32 kg

DRUGS (1)
  1. EXJADE [Suspect]
     Indication: SICKLE CELL ANAEMIA
     Dosage: 625 MG, DAILY
     Route: 048
     Dates: start: 20110801

REACTIONS (3)
  - PANCREATIC ENZYMES ABNORMAL [None]
  - LIVER FUNCTION TEST ABNORMAL [None]
  - SICKLE CELL ANAEMIA WITH CRISIS [None]
